FAERS Safety Report 6913917-0 (Version None)
Quarter: 2010Q3

REPORT INFORMATION
  Report Type: 
  Country: None (occurrence: None)
  Receive Date: 20100809
  Receipt Date: 20100728
  Transmission Date: 20110219
  Serious: Yes (Other)
  Sender: FDA-Public Use
  Company Number: US-WYE-H16487910

PATIENT
  Sex: Female

DRUGS (1)
  1. EFFEXOR XR [Suspect]
     Dosage: 150 MG, FREQUENCY UNSPECIFIED

REACTIONS (3)
  - DRUG WITHDRAWAL SYNDROME [None]
  - MALAISE [None]
  - SUICIDAL IDEATION [None]
